FAERS Safety Report 15489823 (Version 1)
Quarter: 2018Q4

REPORT INFORMATION
  Report Type: Spontaneous
  Country: CH (occurrence: CH)
  Receive Date: 20181011
  Receipt Date: 20181011
  Transmission Date: 20190205
  Serious: Yes (Hospitalization)
  Sender: FDA-Public Use
  Company Number: CH-LANNETT COMPANY, INC.-CH-2018LAN001191

PATIENT
  Age: 72 Year
  Sex: Female

DRUGS (2)
  1. MORPHINE SULFATE. [Suspect]
     Active Substance: MORPHINE SULFATE
     Indication: PRODUCT USED FOR UNKNOWN INDICATION
     Dosage: 7 MG, UNK (TOTAL DOSE)
     Route: 042
  2. MORPHINE SULFATE. [Suspect]
     Active Substance: MORPHINE SULFATE
     Dosage: 100 MG, (DURING THE FIRST 24 HOUR)
     Route: 048

REACTIONS (3)
  - Toxicity to various agents [Unknown]
  - Altered state of consciousness [Unknown]
  - Respiratory depression [Unknown]
